FAERS Safety Report 16732770 (Version 1)
Quarter: 2019Q3

REPORT INFORMATION
  Report Type: Spontaneous
  Country: US (occurrence: US)
  Receive Date: 20190823
  Receipt Date: 20190823
  Transmission Date: 20191005
  Serious: No
  Sender: FDA-Public Use
  Company Number: US-TEVA-2019-US-1095271

PATIENT
  Sex: Female

DRUGS (3)
  1. CRYSELLE [Suspect]
     Active Substance: ETHINYL ESTRADIOL\NORGESTREL
     Indication: UNDERWEIGHT
  2. CRYSELLE [Suspect]
     Active Substance: ETHINYL ESTRADIOL\NORGESTREL
     Indication: AMENORRHOEA
  3. CRYSELLE [Suspect]
     Active Substance: ETHINYL ESTRADIOL\NORGESTREL
     Indication: ORAL CONTRACEPTION
     Dosage: DOSE STRENGTH:  0.3 MG/0.03 MG
     Route: 048
     Dates: start: 2017

REACTIONS (2)
  - Rash [Unknown]
  - Acne cystic [Unknown]
